FAERS Safety Report 6531496-7 (Version None)
Quarter: 2010Q1

REPORT INFORMATION
  Report Type: 
  Country: None (occurrence: None)
  Receive Date: 20100108
  Receipt Date: 20100103
  Transmission Date: 20100710
  Serious: Yes (Death, Hospitalization)
  Sender: FDA-Public Use
  Company Number: EG-PFIZER INC-2010000120

PATIENT
  Age: 14 Year
  Sex: Male

DRUGS (4)
  1. CEFOBID [Suspect]
     Indication: FEBRILE NEUTROPENIA
     Dosage: 0.5 G, 3X/DAY
     Route: 042
     Dates: start: 20091122, end: 20091122
  2. AMPICILLIN SODIUM/SULBACTAM SODIUM [Concomitant]
     Indication: FEBRILE NEUTROPENIA
     Dosage: 1.5 G, 2X/DAY
     Route: 042
     Dates: start: 20091122, end: 20091122
  3. PARACETAMOL [Concomitant]
     Indication: FEBRILE NEUTROPENIA
     Dosage: UNK
     Route: 048
     Dates: start: 20091122, end: 20091122
  4. SPORANOX [Concomitant]
     Indication: SYSTEMIC MYCOSIS
     Dosage: UNK
     Route: 048
     Dates: start: 20091122, end: 20091122

REACTIONS (4)
  - CARDIAC ARREST [None]
  - CHEST DISCOMFORT [None]
  - HYPERSENSITIVITY [None]
  - SHOCK [None]
